FAERS Safety Report 6114894-5 (Version None)
Quarter: 2009Q1

REPORT INFORMATION
  Report Type: 
  Country: None (occurrence: None)
  Receive Date: 20090313
  Receipt Date: 20090305
  Transmission Date: 20090719
  Serious: Yes (Hospitalization)
  Sender: FDA-Public Use
  Company Number: PHHY2009JP03110

PATIENT
  Sex: Female
  Weight: 60 kg

DRUGS (6)
  1. DIOVAN [Suspect]
     Dosage: 40 MG, QD
     Route: 048
     Dates: start: 20071220, end: 20080220
  2. DIOVAN [Suspect]
     Dosage: 80 MG, QD
     Route: 048
     Dates: start: 20080221, end: 20080523
  3. NORVASC [Concomitant]
     Indication: HYPERTENSION
     Dosage: 5 MG, UNK
     Route: 048
     Dates: start: 20071018, end: 20080523
  4. GLIMICRON [Concomitant]
     Dosage: 20 MG, UNK
     Route: 048
     Dates: start: 20071018, end: 20080523
  5. VITANEURIN [Concomitant]
     Dosage: 100 MG, UNK
     Route: 048
     Dates: start: 20071018, end: 20080523
  6. MERCAZOLE [Concomitant]
     Dosage: 2.5 MG, UNK
     Route: 048
     Dates: start: 20071018, end: 20080523

REACTIONS (3)
  - BLOOD CHOLESTEROL INCREASED [None]
  - BLOOD CREATININE INCREASED [None]
  - MYOCARDIAL INFARCTION [None]
